FAERS Safety Report 5508967-5 (Version None)
Quarter: 2007Q4

REPORT INFORMATION
  Report Type: 
  Country: None (occurrence: None)
  Receive Date: 20071031
  Receipt Date: 20070814
  Transmission Date: 20080405
  Serious: No
  Sender: FDA-Public Use
  Company Number: 2007PV033294

PATIENT
  Age: 52 Year
  Sex: Female
  Weight: 81.6475 kg

DRUGS (8)
  1. SYMLIN [Suspect]
     Indication: TYPE 2 DIABETES MELLITUS
     Dosage: 120, 60, 18 MCG;TID;SC
     Route: 058
     Dates: end: 20060101
  2. SYMLIN [Suspect]
     Indication: TYPE 2 DIABETES MELLITUS
     Dosage: 120, 60, 18 MCG;TID;SC
     Route: 058
     Dates: start: 20060101, end: 20060501
  3. SYMLIN [Suspect]
     Indication: TYPE 2 DIABETES MELLITUS
     Dosage: 120, 60, 18 MCG;TID;SC
     Route: 058
     Dates: start: 20060501
  4. PRILOSEC [Suspect]
  5. LANTUS [Concomitant]
  6. HUMALOG [Concomitant]
  7. NEXIUM [Concomitant]
  8. PRILOSEC [Concomitant]

REACTIONS (6)
  - ABDOMINAL DISTENSION [None]
  - BLOOD GLUCOSE INCREASED [None]
  - DRUG EFFECT DECREASED [None]
  - GLYCOSYLATED HAEMOGLOBIN INCREASED [None]
  - NAUSEA [None]
  - STOMACH DISCOMFORT [None]
